FAERS Safety Report 5344975-5 (Version None)
Quarter: 2007Q2

REPORT INFORMATION
  Report Type: 
  Country: None (occurrence: None)
  Receive Date: 20070416
  Receipt Date: 20070104
  Transmission Date: 20071010
  Serious: No
  Sender: FDA-Public Use
  Company Number: 2007SP000041

PATIENT
  Age: 91 Year
  Sex: Female
  Weight: 46.2669 kg

DRUGS (5)
  1. LUNESTA [Suspect]
     Indication: INSOMNIA
     Dosage: 2 MG;HS;ORAL
     Route: 048
     Dates: start: 20061201, end: 20061201
  2. PLAVIX [Concomitant]
  3. ALTACE [Concomitant]
  4. OXYBUTYNIN [Concomitant]
  5. ATORVASTATIN [Concomitant]

REACTIONS (3)
  - DIZZINESS [None]
  - FALL [None]
  - LACERATION [None]
